FAERS Safety Report 8344408-0 (Version None)
Quarter: 2012Q2

REPORT INFORMATION
  Report Type: 
  Country: None (occurrence: None)
  Receive Date: 20120508
  Receipt Date: 20120424
  Transmission Date: 20120825
  Serious: Yes (Other)
  Sender: FDA-Public Use
  Company Number: CO-AMGEN-COLSP2012012822

PATIENT
  Age: 65 Year
  Sex: Female

DRUGS (7)
  1. DIPYRONE TAB [Concomitant]
     Indication: HEADACHE
     Dosage: UNK
  2. METHOTREXATE [Concomitant]
     Indication: RHEUMATOID ARTHRITIS
     Dosage: ONE DAILY
     Dates: start: 19760101
  3. PREDNISOLONE [Concomitant]
     Indication: RHEUMATOID ARTHRITIS
     Dosage: ONE DAILY
  4. CALCITROL                          /00508501/ [Concomitant]
     Indication: HYPOCALCAEMIA
     Dosage: UNK
  5. ENBREL [Suspect]
     Indication: RHEUMATOID ARTHRITIS
     Dosage: 50 MG, WEEKLY
     Dates: start: 20120218
  6. ALENDRONATE SODIUM [Concomitant]
     Indication: OSTEOPOROSIS
     Dosage: UNK
  7. ACETAMINOPHEN [Concomitant]
     Indication: PAIN
     Dosage: UNK

REACTIONS (4)
  - PRURITUS [None]
  - PETECHIAE [None]
  - HEADACHE [None]
  - URTICARIA [None]
